FAERS Safety Report 6214085-3 (Version None)
Quarter: 2009Q2

REPORT INFORMATION
  Report Type: 
  Country: None (occurrence: None)
  Receive Date: 20090604
  Receipt Date: 20070731
  Transmission Date: 20091009
  Serious: Yes (Other)
  Sender: FDA-Public Use
  Company Number: US-ASTRAZENECA-2007UW09615

PATIENT
  Age: 15296 Day
  Sex: Male
  Weight: 108 kg

DRUGS (8)
  1. SEROQUEL [Suspect]
     Indication: SLEEP DISORDER
     Route: 048
     Dates: start: 20000821, end: 20030821
  2. SEROQUEL [Suspect]
     Dosage: 25-100 MG
     Route: 048
     Dates: start: 20000828
  3. CLONAZEPAM [Concomitant]
     Dosage: 1-2 MG
     Route: 048
     Dates: start: 20000828
  4. PREVACID [Concomitant]
     Route: 048
     Dates: start: 20000828
  5. CLOMIPRAMINE HCL [Concomitant]
     Route: 048
     Dates: start: 20000828
  6. NAPROXEN SODIUM [Concomitant]
     Route: 048
     Dates: start: 20011127
  7. HYDROCODONE BITARTRATE + ACETAMINOPHEN [Concomitant]
     Dosage: 5 MG/500 MG
     Route: 048
     Dates: start: 20011127
  8. PAXIL [Concomitant]
     Route: 048
     Dates: start: 20020802

REACTIONS (2)
  - NEUROPATHY PERIPHERAL [None]
  - TYPE 2 DIABETES MELLITUS [None]
